FAERS Safety Report 24154048 (Version 1)
Quarter: 2024Q3

REPORT INFORMATION
  Report Type: Report from Study
  Country: MX (occurrence: MX)
  Receive Date: 20240730
  Receipt Date: 20240730
  Transmission Date: 20241016
  Serious: Yes (Hospitalization, Other)
  Sender: NOVARTIS
  Company Number: MX-002147023-NVSC2024MX146604

PATIENT
  Age: 19 Year
  Sex: Female

DRUGS (1)
  1. GILENYA [Suspect]
     Active Substance: FINGOLIMOD HYDROCHLORIDE
     Indication: Multiple sclerosis
     Dosage: 0.5 MG, QD (1 CAPSULE OF 0.5 MG)
     Route: 048
     Dates: start: 2014

REACTIONS (5)
  - Multiple sclerosis relapse [Recovered/Resolved]
  - Sensory loss [Recovered/Resolved]
  - Skin burning sensation [Recovered/Resolved]
  - Skin lesion [Not Recovered/Not Resolved]
  - Drug ineffective [Not Recovered/Not Resolved]

NARRATIVE: CASE EVENT DATE: 20240601
